FAERS Safety Report 8857582 (Version 1)
Quarter: 2012Q4

REPORT INFORMATION
  Report Type: 
  Country: US (occurrence: US)
  Receive Date: 20121024
  Receipt Date: 20121024
  Transmission Date: 20130627
  Serious: Yes (Death, Hospitalization)
  Sender: FDA-Public Use
  Company Number: US-ARROW-2012-18133

PATIENT
  Age: 58 Year
  Sex: Male

DRUGS (2)
  1. METFORMIN HYDROCHLORIDE [Suspect]
     Indication: TYPE 2 DIABETES MELLITUS
     Dosage: 40 - 500mg tabs
     Route: 048
  2. DILTIAZEM HYDROCHLORIDE [Suspect]
     Indication: PRODUCT USED FOR UNKNOWN INDICATION
     Dosage: 20 - 240mg tabs
     Route: 048

REACTIONS (7)
  - Suicide attempt [Fatal]
  - Overdose [Fatal]
  - Lactic acidosis [Not Recovered/Not Resolved]
  - Somnolence [Not Recovered/Not Resolved]
  - Hypotension [Not Recovered/Not Resolved]
  - Lethargy [Not Recovered/Not Resolved]
  - Bradycardia [Not Recovered/Not Resolved]
